FAERS Safety Report 4812279-2 (Version None)
Quarter: 2005Q4

REPORT INFORMATION
  Report Type: 
  Country: None (occurrence: None)
  Receive Date: 20051028
  Receipt Date: 20041001
  Transmission Date: 20060501
  Serious: No
  Sender: FDA-Public Use
  Company Number: US-GLAXOSMITHKLINE-A0528133A

PATIENT
  Age: 73 Year
  Sex: Female
  Weight: 74.5 kg

DRUGS (8)
  1. ADVAIR DISKUS 100/50 [Suspect]
     Indication: ASTHMA
     Dosage: 500MG TWICE PER DAY
     Route: 055
     Dates: start: 20040916
  2. SINGULAIR [Concomitant]
     Indication: ASTHMA
     Dosage: 10MG PER DAY
     Route: 048
     Dates: start: 20040916
  3. TRIAMTERENE AND HYDROCHLOROTHIAZIDE [Concomitant]
     Indication: HYPERTENSION
     Dosage: 37.5MG PER DAY
     Route: 048
  4. LEVOTHYROXINE [Concomitant]
     Indication: HYPOTHYROIDISM
     Dosage: .88MG PER DAY
     Route: 048
  5. PREMARIN [Concomitant]
     Indication: MENOPAUSE
     Dosage: .625MG PER DAY
     Route: 048
  6. ENALAPRIL [Concomitant]
     Indication: HYPERTENSION
     Dosage: 5MG PER DAY
     Route: 048
  7. LEXAPRO [Concomitant]
     Indication: DEPRESSION
     Dosage: 10MG PER DAY
     Route: 048
  8. NASONEX [Concomitant]
     Dosage: 2SPR PER DAY

REACTIONS (1)
  - ALOPECIA [None]
